FAERS Safety Report 6930362-2 (Version None)
Quarter: 2010Q3

REPORT INFORMATION
  Report Type: 
  Country: None (occurrence: None)
  Receive Date: 20100818
  Receipt Date: 20100805
  Transmission Date: 20110219
  Serious: Yes (Hospitalization)
  Sender: FDA-Public Use
  Company Number: JP-ROCHE-720625

PATIENT
  Sex: Male

DRUGS (3)
  1. CAPECITABINE [Suspect]
     Indication: GASTROOESOPHAGEAL CANCER
     Dosage: 2 WEEKS ADMINISTRATION FOLLOWED BY 1 WEEK REST.
     Route: 048
     Dates: start: 20100614
  2. CISPLATIN [Suspect]
     Indication: GASTROOESOPHAGEAL CANCER
     Dosage: DOSAGE IS UNCERTAIN
     Route: 042
     Dates: start: 20100614
  3. ERBITUX [Concomitant]
     Dosage: DOSAGE IS UNCERTAIN
     Route: 042
     Dates: start: 20100614

REACTIONS (1)
  - SPINAL CORD INFARCTION [None]
